FAERS Safety Report 4644175-8 (Version None)
Quarter: 2005Q2

REPORT INFORMATION
  Report Type: 
  Country: None (occurrence: None)
  Receive Date: 20050425
  Receipt Date: 20050422
  Transmission Date: 20051028
  Serious: Yes (Other)
  Sender: FDA-Public Use
  Company Number: FR-GLAXOSMITHKLINE-B0379009A

PATIENT
  Age: 61 Year
  Sex: Male

DRUGS (1)
  1. AUGMENTIN [Suspect]
     Indication: BRONCHITIS
     Dosage: 1G TWICE PER DAY
     Route: 048
     Dates: start: 20050419

REACTIONS (2)
  - ANAL HAEMORRHAGE [None]
  - DIARRHOEA [None]
